FAERS Safety Report 7223188-6 (Version None)
Quarter: 2011Q1

REPORT INFORMATION
  Report Type: 
  Country: None (occurrence: None)
  Receive Date: 20110112
  Receipt Date: 20100224
  Transmission Date: 20110831
  Serious: No
  Sender: FDA-Public Use
  Company Number: US-ALLERGAN-1002458US

PATIENT
  Age: 70 Year
  Sex: Female

DRUGS (3)
  1. RESTASIS [Suspect]
     Indication: DRY EYE
     Dosage: UNK
     Route: 047
  2. SYNTHROID [Concomitant]
     Indication: THYROID DISORDER
  3. REFRESH LUBRICANT OPHTHALMIC SOLUTION [Concomitant]
     Indication: DRY EYE
     Dosage: UNK
     Route: 047

REACTIONS (1)
  - VISION BLURRED [None]
